FAERS Safety Report 20458357 (Version 1)
Quarter: 2022Q1

REPORT INFORMATION
  Report Type: Spontaneous
  Country: GB (occurrence: GB)
  Receive Date: 20220211
  Receipt Date: 20220211
  Transmission Date: 20220423
  Serious: Yes (Hospitalization, Other)
  Sender: FDA-Public Use
  Company Number: GB-MHRA-EMIS-12890-b35bb0e0-3c6a-4bdc-b1ee-bfe70cee7e44

PATIENT
  Age: 60 Year
  Sex: Female
  Weight: 106.2 kg

DRUGS (5)
  1. AMIODARONE [Suspect]
     Active Substance: AMIODARONE
     Indication: Product used for unknown indication
     Dosage: UNK
     Route: 065
  2. CARBIMAZOLE [Concomitant]
     Active Substance: CARBIMAZOLE
     Indication: Thyroiditis
     Dosage: UNK (ONE TO BE TAKEN EACH DAY)
     Route: 065
     Dates: start: 20211102, end: 20211201
  3. COMIRNATY [Concomitant]
     Active Substance: TOZINAMERAN
     Indication: COVID-19 immunisation
     Dosage: 0.3 MILLILITER
     Route: 030
     Dates: start: 20211219, end: 20211219
  4. NOVORAPID [Concomitant]
     Active Substance: INSULIN ASPART
     Indication: Product used for unknown indication
     Dosage: UNK (SUBCUTANEOUS INJEC, IMMEDIATELY BEFORE MEALS OR PRN SHORTLY AFTER MEALS, ACCORDING TO REQUIREME
     Route: 065
     Dates: start: 20211222
  5. PREDNISOLONE [Concomitant]
     Active Substance: PREDNISOLONE
     Indication: Thyroiditis
     Dosage: UNK (EIGHT TO BE TAKEN EACH DAY (40MG) FOR 2 WEEKS)
     Route: 065
     Dates: start: 20211102, end: 20211201

REACTIONS (1)
  - Thyroiditis [Recovering/Resolving]
